FAERS Safety Report 25691852 (Version 1)
Quarter: 2025Q3

REPORT INFORMATION
  Report Type: Spontaneous
  Country: EU (occurrence: EU)
  Receive Date: 20250818
  Receipt Date: 20250818
  Transmission Date: 20251020
  Serious: Yes (Hospitalization, Disabling, Other)
  Sender: MYLAN
  Company Number: None

PATIENT
  Age: 27 Month
  Sex: Female

DRUGS (34)
  1. CYCLOSPORINE [Suspect]
     Active Substance: CYCLOSPORINE
     Indication: Liver transplant
  2. CYCLOSPORINE [Suspect]
     Active Substance: CYCLOSPORINE
     Route: 042
  3. CYCLOSPORINE [Suspect]
     Active Substance: CYCLOSPORINE
     Route: 042
  4. CYCLOSPORINE [Suspect]
     Active Substance: CYCLOSPORINE
  5. BASILIXIMAB [Suspect]
     Active Substance: BASILIXIMAB
     Indication: Liver transplant
  6. BASILIXIMAB [Suspect]
     Active Substance: BASILIXIMAB
     Route: 065
  7. BASILIXIMAB [Suspect]
     Active Substance: BASILIXIMAB
     Route: 065
  8. BASILIXIMAB [Suspect]
     Active Substance: BASILIXIMAB
  9. PREDNISONE [Suspect]
     Active Substance: PREDNISONE
     Indication: Liver transplant
  10. PREDNISONE [Suspect]
     Active Substance: PREDNISONE
  11. PREDNISONE [Suspect]
     Active Substance: PREDNISONE
     Route: 065
  12. PREDNISONE [Suspect]
     Active Substance: PREDNISONE
     Route: 065
  13. PREDNISONE [Suspect]
     Active Substance: PREDNISONE
  14. PREDNISONE [Suspect]
     Active Substance: PREDNISONE
  15. PREDNISONE [Suspect]
     Active Substance: PREDNISONE
     Route: 065
  16. PREDNISONE [Suspect]
     Active Substance: PREDNISONE
     Route: 065
  17. VORICONAZOLE [Suspect]
     Active Substance: VORICONAZOLE
     Dosage: DAILY DOSE: 180 MG MILLIGRAM(S) EVERY DAY
     Dates: start: 20091218, end: 20091225
  18. VORICONAZOLE [Suspect]
     Active Substance: VORICONAZOLE
     Dosage: DAILY DOSE: 180 MG MILLIGRAM(S) EVERY DAY
     Route: 042
     Dates: start: 20091218, end: 20091225
  19. VORICONAZOLE [Suspect]
     Active Substance: VORICONAZOLE
     Dosage: DAILY DOSE: 180 MG MILLIGRAM(S) EVERY DAY
     Route: 042
     Dates: start: 20091218, end: 20091225
  20. VORICONAZOLE [Suspect]
     Active Substance: VORICONAZOLE
     Dosage: DAILY DOSE: 180 MG MILLIGRAM(S) EVERY DAY
     Dates: start: 20091218, end: 20091225
  21. ZANAMIVIR [Suspect]
     Active Substance: ZANAMIVIR
     Indication: H1N1 influenza
     Dosage: DAILY DOSE: 520 MG MILLIGRAM(S) EVERY DAY
     Route: 042
     Dates: start: 20091219, end: 20091224
  22. ZANAMIVIR [Suspect]
     Active Substance: ZANAMIVIR
     Dosage: DAILY DOSE: 520 MG MILLIGRAM(S) EVERY DAY
     Dates: start: 20091219, end: 20091224
  23. CYCLOSPORINE [Suspect]
     Active Substance: CYCLOSPORINE
     Indication: Secondary immunodeficiency
     Dosage: DAILY DOSE: 30 MG MILLIGRAM(S) EVERY DAY
     Dates: start: 20091203, end: 20091222
  24. CYCLOSPORINE [Suspect]
     Active Substance: CYCLOSPORINE
     Dosage: DAILY DOSE: 30 MG MILLIGRAM(S) EVERY DAY
     Route: 042
     Dates: start: 20091203, end: 20091222
  25. CYCLOSPORINE [Suspect]
     Active Substance: CYCLOSPORINE
     Dosage: DAILY DOSE: 30 MG MILLIGRAM(S) EVERY DAY
     Route: 042
     Dates: start: 20091203, end: 20091222
  26. CYCLOSPORINE [Suspect]
     Active Substance: CYCLOSPORINE
     Dosage: DAILY DOSE: 30 MG MILLIGRAM(S) EVERY DAY
     Dates: start: 20091203, end: 20091222
  27. MEROPENEM [Concomitant]
     Active Substance: MEROPENEM
     Dosage: DAILY DOSE: 900 MG MILLIGRAM(S) EVERY DAY
     Dates: start: 20091212, end: 20091226
  28. MEROPENEM [Concomitant]
     Active Substance: MEROPENEM
     Dosage: DAILY DOSE: 900 MG MILLIGRAM(S) EVERY DAY
     Route: 042
     Dates: start: 20091212, end: 20091226
  29. MEROPENEM [Concomitant]
     Active Substance: MEROPENEM
     Dosage: DAILY DOSE: 900 MG MILLIGRAM(S) EVERY DAY
     Route: 042
     Dates: start: 20091212, end: 20091226
  30. MEROPENEM [Concomitant]
     Active Substance: MEROPENEM
     Dosage: DAILY DOSE: 900 MG MILLIGRAM(S) EVERY DAY
     Dates: start: 20091212, end: 20091226
  31. OSELTAMIVIR [Concomitant]
     Active Substance: OSELTAMIVIR
     Dosage: DAILY DOSE: 60 MG MILLIGRAM(S) EVERY DAY
  32. OSELTAMIVIR [Concomitant]
     Active Substance: OSELTAMIVIR
     Dosage: DAILY DOSE: 60 MG MILLIGRAM(S) EVERY DAY
     Route: 065
  33. OSELTAMIVIR [Concomitant]
     Active Substance: OSELTAMIVIR
     Dosage: DAILY DOSE: 60 MG MILLIGRAM(S) EVERY DAY
     Route: 065
  34. OSELTAMIVIR [Concomitant]
     Active Substance: OSELTAMIVIR
     Dosage: DAILY DOSE: 60 MG MILLIGRAM(S) EVERY DAY

REACTIONS (16)
  - Hepatic function abnormal [Unknown]
  - Retrograde portal vein flow [Recovered/Resolved]
  - Acute respiratory distress syndrome [Recovering/Resolving]
  - Lung infiltration [Recovering/Resolving]
  - Pyrexia [Recovering/Resolving]
  - Impaired gastric emptying [Recovering/Resolving]
  - Alanine aminotransferase increased [Recovered/Resolved]
  - Aspartate aminotransferase increased [Recovered/Resolved]
  - Renal impairment [Recovered/Resolved]
  - Leukopenia [Recovering/Resolving]
  - Hepatic enzyme increased [Recovered/Resolved]
  - PaO2/FiO2 ratio decreased [Recovering/Resolving]
  - Influenza A virus test positive [Recovering/Resolving]
  - Respiratory disorder [Recovering/Resolving]
  - Blood creatinine increased [Recovered/Resolved]
  - H1N1 influenza [Recovering/Resolving]

NARRATIVE: CASE EVENT DATE: 20091220
